FAERS Safety Report 5463059-9 (Version None)
Quarter: 2007Q3

REPORT INFORMATION
  Report Type: 
  Country: None (occurrence: None)
  Receive Date: 20070920
  Receipt Date: 20070917
  Transmission Date: 20080115
  Serious: Yes (Other)
  Sender: FDA-Public Use
  Company Number: HQWYE208218SEP07

PATIENT

DRUGS (10)
  1. RAPAMUNE [Suspect]
     Indication: PROPHYLAXIS AGAINST TRANSPLANT REJECTION
     Dosage: 6 MG SINGLE DOSE
     Route: 048
  2. RAPAMUNE [Suspect]
     Route: 048
  3. RAPAMUNE [Suspect]
     Dosage: VARIABLE DEPENDING ON TROUGH LEVEL
     Route: 048
  4. BACTRIM [Concomitant]
     Indication: ANTIFUNGAL PROPHYLAXIS
     Dosage: 960MG/160 MG TWICE WEEKLY
     Route: 065
  5. PREDNISONE [Concomitant]
     Indication: PROPHYLAXIS AGAINST TRANSPLANT REJECTION
     Dosage: 1 MG/KG/DAY
  6. PREDNISONE [Concomitant]
     Dosage: DOSE DECREASED STEPWISE TO 0.1 MG/KG/DAY
     Route: 048
  7. PRIMAXIN [Concomitant]
     Indication: INFECTION PROPHYLAXIS
     Dosage: THREE 500 MG DOSES PERI-OPERATIVELY
     Route: 065
  8. TACROLIMUS [Concomitant]
     Indication: PROPHYLAXIS AGAINST TRANSPLANT REJECTION
     Dosage: 0.01 TO 0.03 MG/KG/DAY IMMEDIATELY POST-OPERATIVELY
     Route: 042
  9. TACROLIMUS [Concomitant]
     Dosage: 0.05-0.10 MG/KG/DAY GIVEN IN 2 EQUAL DOSES, DOSE WAS DEPENDENT ON TROUGH LEVELS
     Route: 048
  10. METHYLPREDNISOLONE [Concomitant]
     Indication: PROPHYLAXIS AGAINST TRANSPLANT REJECTION
     Route: 042

REACTIONS (2)
  - HEART TRANSPLANT REJECTION [None]
  - TRANSPLANT REJECTION [None]
